FAERS Safety Report 5132696-3 (Version None)
Quarter: 2006Q4

REPORT INFORMATION
  Report Type: 
  Country: None (occurrence: None)
  Receive Date: 20061017
  Receipt Date: 20061006
  Transmission Date: 20070319
  Serious: Yes (Life-Threatening, Hospitalization)
  Sender: FDA-Public Use
  Company Number: S06-ITA-02867-00

PATIENT
  Sex: Male

DRUGS (2)
  1. PROPESS [Suspect]
     Indication: LABOUR INDUCTION
     Dosage: 10 MG ONCE TRANSPLACENTAL
     Route: 064
     Dates: start: 20060609, end: 20060609
  2. AMPLITAL (AMPICILLIN) [Concomitant]

REACTIONS (4)
  - CAESAREAN SECTION [None]
  - CONVULSION NEONATAL [None]
  - DRUG EXPOSURE DURING PREGNANCY [None]
  - HYPOXIC ENCEPHALOPATHY [None]
